FAERS Safety Report 12089822 (Version 2)
Quarter: 2016Q2

REPORT INFORMATION
  Report Type: Spontaneous
  Country: US (occurrence: US)
  Receive Date: 20160218
  Receipt Date: 20160408
  Transmission Date: 20160815
  Serious: Yes (Hospitalization)
  Sender: FDA-Public Use
  Company Number: US-HORIZON-ACT-0035-2016

PATIENT
  Age: 55 Year
  Sex: Male

DRUGS (1)
  1. ACTIMMUNE [Suspect]
     Active Substance: INTERFERON GAMMA-1B
     Indication: DERMATITIS ATOPIC
     Dosage: 100 MG EVERY OTHER DAY
     Dates: start: 20130320

REACTIONS (2)
  - Off label use [Unknown]
  - Dermatitis infected [Recovered/Resolved]

NARRATIVE: CASE EVENT DATE: 20160212
